FAERS Safety Report 8104393-3 (Version None)
Quarter: 2011Q4

REPORT INFORMATION
  Report Type: 
  Country: None (occurrence: None)
  Receive Date: 20111222
  Receipt Date: 20110823
  Transmission Date: 20120403
  Serious: Yes (Hospitalization)
  Sender: FDA-Public Use
  Company Number: UTC-009657

PATIENT
  Age: 68 Year
  Sex: Male
  Weight: 147.7 kg

DRUGS (5)
  1. TYVASO [Suspect]
     Indication: PULMONARY HYPERTENSION
     Dosage: 216 MCG (54 MCG, 4 IN 1 D),INHALATION ; (6 MCG),INHALATION
     Route: 055
     Dates: start: 20110727
  2. TYVASO [Suspect]
     Indication: PULMONARY HYPERTENSION
     Dosage: 216 MCG (54 MCG, 4 IN 1 D),INHALATION ; (6 MCG),INHALATION
     Route: 055
     Dates: start: 20110117
  3. DIURETICS (DIURETICS) [Concomitant]
  4. ADCIRCA [Concomitant]
  5. PLAVIX [Concomitant]

REACTIONS (2)
  - THROAT IRRITATION [None]
  - DYSPNOEA [None]
